FAERS Safety Report 25763614 (Version 1)
Quarter: 2025Q3

REPORT INFORMATION
  Report Type: Spontaneous
  Country: US (occurrence: US)
  Receive Date: 20250905
  Receipt Date: 20250905
  Transmission Date: 20251021
  Serious: No
  Sender: DOMPE FARMACEUTICI
  Company Number: US-FARMAPROD-202410-3564

PATIENT
  Sex: Female
  Weight: 58.06 kg

DRUGS (9)
  1. OXERVATE [Suspect]
     Active Substance: CENEGERMIN-BKBJ
     Indication: Product used for unknown indication
     Route: 047
     Dates: start: 20241002, end: 20241130
  2. OXERVATE [Suspect]
     Active Substance: CENEGERMIN-BKBJ
  3. MOXIFLOXACIN [Concomitant]
     Active Substance: MOXIFLOXACIN
  4. FLUOROMETHOLONE [Concomitant]
     Active Substance: FLUOROMETHOLONE
  5. ESTRADIOL [Concomitant]
     Active Substance: ESTRADIOL
  6. TRAZODONE HCL [Concomitant]
     Active Substance: TRAZODONE HYDROCHLORIDE
  7. SYNTHROID [Concomitant]
     Active Substance: LEVOTHYROXINE SODIUM
  8. TIMOLOL MALEATE [Concomitant]
     Active Substance: TIMOLOL MALEATE
  9. TRAVOPROST [Concomitant]
     Active Substance: TRAVOPROST

REACTIONS (2)
  - Eye pain [Unknown]
  - Drug ineffective [Unknown]
